FAERS Safety Report 4909505-8 (Version None)
Quarter: 2006Q1

REPORT INFORMATION
  Report Type: 
  Country: None (occurrence: None)
  Receive Date: 20060213
  Receipt Date: 20051229
  Transmission Date: 20060701
  Serious: Yes (Hospitalization, Other)
  Sender: FDA-Public Use
  Company Number: US-MERCK-0601USA00034

PATIENT
  Age: 70 Year
  Sex: Male
  Weight: 70 kg

DRUGS (5)
  1. VIOXX [Suspect]
     Indication: ARTHRITIS
     Route: 048
     Dates: start: 20000801, end: 20040901
  2. LIPITOR [Concomitant]
     Route: 065
  3. PROBENECID [Concomitant]
     Route: 065
  4. VASOTEC RPD [Concomitant]
     Route: 048
  5. PEPCID [Concomitant]
     Route: 048

REACTIONS (10)
  - BIOPSY VOCAL CORD [None]
  - CARDIAC FIBRILLATION [None]
  - CAROTID ARTERY STENOSIS [None]
  - CEREBROVASCULAR ACCIDENT [None]
  - COORDINATION ABNORMAL [None]
  - DIABETIC NEUROPATHY [None]
  - INTERMITTENT CLAUDICATION [None]
  - MYOCARDIAL INFARCTION [None]
  - SYNCOPE [None]
  - VASCULAR DEMENTIA [None]
